FAERS Safety Report 7169395 (Version 4)
Quarter: 2013Q2

REPORT INFORMATION
  Report Type: Spontaneous
  Country: JP (occurrence: None)
  Receive Date: 20091015
  Receipt Date: 20130416
  Transmission Date: 20140414
  Serious: Yes (Death)
  Sender: FDA-Public Use
  Company Number: THYM-1001240

PATIENT
  Age: 48 Year
  Sex: Male
  Weight: 60 kg

DRUGS (2)
  1. THYMOGLOBULIN [Suspect]
     Indication: ACUTE GRAFT VERSUS HOST DISEASE
     Dosage: 50 MG,QD, INTRAVENOUS
     Route: 042
     Dates: start: 20090514, end: 20090517
  2. THYMOGLOBULIN [Suspect]
     Indication: BONE MARROW CONDITIONING REGIMEN
     Dosage: 50 MG,QD, INTRAVENOUS
     Route: 042
     Dates: start: 20090514, end: 20090517

REACTIONS (2)
  - Hepatitis B [None]
  - Concomitant disease aggravated [None]
